FAERS Safety Report 25721340 (Version 1)
Quarter: 2025Q3

REPORT INFORMATION
  Report Type: Spontaneous
  Country: EU (occurrence: EU)
  Receive Date: 20250825
  Receipt Date: 20250825
  Transmission Date: 20251021
  Serious: Yes (Death, Hospitalization, Other)
  Sender: AUROBINDO
  Company Number: EU-EMA-20170607-ajevhp-151646701

PATIENT
  Age: 43 Year
  Sex: Female

DRUGS (6)
  1. MYCOPHENOLIC ACID [Suspect]
     Active Substance: MYCOPHENOLIC ACID
     Indication: Immunosuppression
     Dosage: 1000 MILLIGRAM, TWO TIMES A DAY
     Route: 065
  2. PREDNISONE [Suspect]
     Active Substance: PREDNISONE
     Indication: Immunosuppressant drug therapy
     Dosage: 80 MILLIGRAM, ONCE A DAY
     Route: 065
  3. PREDNISONE [Suspect]
     Active Substance: PREDNISONE
     Dosage: 20 MILLIGRAM, ONCE A DAY
     Route: 065
  4. ACYCLOVIR [Concomitant]
     Active Substance: ACYCLOVIR
     Indication: Herpes simplex
     Dosage: 600 MILLIGRAM, 3 TIMES A DAY
     Route: 065
  5. AZATHIOPRINE [Concomitant]
     Active Substance: AZATHIOPRINE
     Indication: Immunosuppressant drug therapy
     Route: 065
  6. CYCLOSPORINE [Concomitant]
     Active Substance: CYCLOSPORINE
     Indication: Immunosuppressant drug therapy
     Route: 065

REACTIONS (12)
  - Post transplant lymphoproliferative disorder [Fatal]
  - Dehydration [Fatal]
  - Bradyphrenia [Fatal]
  - Epstein-Barr virus associated lymphoproliferative disorder [Fatal]
  - Central nervous system lymphoma [Not Recovered/Not Resolved]
  - Amnesia [Fatal]
  - Epstein-Barr virus infection [Fatal]
  - Decreased appetite [Fatal]
  - Fatigue [Fatal]
  - Herpes simplex [Unknown]
  - Pyrexia [Unknown]
  - Pharyngitis [Unknown]
